FAERS Safety Report 16288199 (Version 1)
Quarter: 2019Q2

REPORT INFORMATION
  Report Type: Spontaneous
  Country: BR (occurrence: BR)
  Receive Date: 20190508
  Receipt Date: 20190508
  Transmission Date: 20190711
  Serious: Yes (Other)
  Sender: FDA-Public Use
  Company Number: BR-ALLERGAN-1800295US

PATIENT
  Sex: Male

DRUGS (3)
  1. RESTASIS [Suspect]
     Active Substance: CYCLOSPORINE
     Indication: LACRIMATION DECREASED
  2. OTHER EYE DROPS [Concomitant]
  3. RESTASIS [Suspect]
     Active Substance: CYCLOSPORINE
     Indication: DRY EYE
     Dosage: 2 GTT, BID
     Route: 047
     Dates: start: 20171221, end: 20171221

REACTIONS (11)
  - Multiple use of single-use product [Unknown]
  - Metastases to liver [Unknown]
  - Hypersensitivity [Recovered/Resolved]
  - Blood pressure increased [Unknown]
  - Headache [Unknown]
  - Eye swelling [Recovered/Resolved]
  - Skin discolouration [Recovered/Resolved]
  - Neck pain [Unknown]
  - Colon cancer metastatic [Unknown]
  - Swelling of eyelid [Recovered/Resolved]
  - Eye discharge [Recovered/Resolved]

NARRATIVE: CASE EVENT DATE: 20171222
